FAERS Safety Report 5361397-1 (Version None)
Quarter: 2007Q2

REPORT INFORMATION
  Report Type: 
  Country: None (occurrence: None)
  Receive Date: 20070530
  Receipt Date: 20070324
  Transmission Date: 20071010
  Serious: No
  Sender: FDA-Public Use
  Company Number: 2007PV032306

PATIENT
  Age: 59 Year
  Sex: Female

DRUGS (6)
  1. BYETTA [Suspect]
     Indication: DIABETES MELLITUS NON-INSULIN-DEPENDENT
     Dosage: SEE IMAGE
     Route: 058
     Dates: start: 20061001, end: 20061101
  2. BYETTA [Suspect]
     Indication: DIABETES MELLITUS NON-INSULIN-DEPENDENT
     Dosage: SEE IMAGE
     Route: 058
     Dates: start: 20061101
  3. METFORMIN HCL [Concomitant]
  4. NORVASC [Concomitant]
  5. DIOVAN [Concomitant]
  6. BLOOD PRESSURE PILL [Concomitant]

REACTIONS (3)
  - DECREASED APPETITE [None]
  - DRUG EFFECT DECREASED [None]
  - ENERGY INCREASED [None]
